FAERS Safety Report 23457171 (Version 3)
Quarter: 2024Q1

REPORT INFORMATION
  Report Type: Report from Study
  Country: US (occurrence: US)
  Receive Date: 20240130
  Receipt Date: 20240214
  Transmission Date: 20240410
  Serious: Yes (Hospitalization, Other)
  Sender: FDA-Public Use
  Company Number: US-Eisai-EC-2024-157873

PATIENT
  Age: 62 Year
  Sex: Female
  Weight: 125 kg

DRUGS (3)
  1. LENVIMA [Suspect]
     Active Substance: LENVATINIB
     Indication: Papillary renal cell carcinoma
     Route: 048
     Dates: start: 20240102, end: 20240116
  2. EVEROLIMUS [Suspect]
     Active Substance: EVEROLIMUS
     Indication: Papillary renal cell carcinoma
     Route: 048
     Dates: start: 20240102, end: 20240116
  3. OPDIVO [Concomitant]
     Active Substance: NIVOLUMAB

REACTIONS (4)
  - Hypertransaminasaemia [Recovering/Resolving]
  - Urinary tract infection [Recovered/Resolved]
  - Diarrhoea [Recovered/Resolved]
  - Dehydration [Recovered/Resolved]

NARRATIVE: CASE EVENT DATE: 20240112
